FAERS Safety Report 20550908 (Version 1)
Quarter: 2022Q1

REPORT INFORMATION
  Report Type: Spontaneous
  Country: US (occurrence: US)
  Receive Date: 20220304
  Receipt Date: 20220304
  Transmission Date: 20220423
  Serious: No
  Sender: FDA-Public Use
  Company Number: US-ELI_LILLY_AND_COMPANY-US202203001244

PATIENT
  Sex: Female

DRUGS (2)
  1. EMGALITY [Suspect]
     Active Substance: GALCANEZUMAB-GNLM
     Indication: Product used for unknown indication
     Dosage: UNK UNK, UNKNOWN
     Route: 065
  2. ANAPROX [Concomitant]
     Active Substance: NAPROXEN SODIUM
     Indication: Back pain

REACTIONS (3)
  - Muscle spasms [Unknown]
  - Head discomfort [Unknown]
  - Product dose omission issue [Unknown]
